FAERS Safety Report 8388535-0 (Version None)
Quarter: 2012Q2

REPORT INFORMATION
  Report Type: 
  Country: None (occurrence: None)
  Receive Date: 20120525
  Receipt Date: 20120516
  Transmission Date: 20120825
  Serious: No
  Sender: FDA-Public Use
  Company Number: US-ASTRAZENECA-2012SE31506

PATIENT
  Age: 43 Year
  Sex: Male
  Weight: 117.9 kg

DRUGS (14)
  1. TRUVADA [Concomitant]
     Dosage: DAILY
  2. LEVOTHYROXINE SODIUM [Concomitant]
  3. PRAVASTATIN [Concomitant]
  4. SEROQUEL [Suspect]
     Indication: BIPOLAR I DISORDER
     Route: 048
     Dates: start: 20050101
  5. CLONAZEPAM [Concomitant]
  6. IBUPROFEN [Concomitant]
  7. SEROQUEL [Suspect]
     Dosage: GENERIC 400 MG AT NIGHT
     Route: 048
     Dates: start: 20120417
  8. ASPIRIN [Concomitant]
  9. NORVIR [Concomitant]
  10. FENOFIBRATE [Concomitant]
  11. MULTI-VITAMINS [Concomitant]
     Dosage: DAILY
  12. ACYCLOVIR [Concomitant]
  13. PREZISTA [Concomitant]
  14. METOPROLOL TARTRATE [Concomitant]

REACTIONS (8)
  - INSOMNIA [None]
  - AGITATION [None]
  - DRUG INEFFECTIVE [None]
  - ELEVATED MOOD [None]
  - RESTLESSNESS [None]
  - BIPOLAR DISORDER [None]
  - IRRITABILITY [None]
  - MANIA [None]
